FAERS Safety Report 12238806 (Version 11)
Quarter: 2017Q3

REPORT INFORMATION
  Report Type: Spontaneous
  Country: US (occurrence: US)
  Receive Date: 20160405
  Receipt Date: 20170705
  Transmission Date: 20171127
  Serious: Yes (Other)
  Sender: FDA-Public Use
  Company Number: US-PFIZER INC-2016180249

PATIENT
  Age: 51 Year
  Sex: Female
  Weight: 78.92 kg

DRUGS (6)
  1. IBRANCE [Suspect]
     Active Substance: PALBOCICLIB
     Dosage: 100 MG, CYCLIC
     Route: 048
  2. IBRANCE [Suspect]
     Active Substance: PALBOCICLIB
     Dosage: 100 MG, CYCLIC (DAYS 1-21 EVERY 28 DAYS)
     Route: 048
  3. IBRANCE [Suspect]
     Active Substance: PALBOCICLIB
     Indication: BREAST CANCER METASTATIC
     Dosage: 100 MG, CYCLIC (DAYS 1-21 EVERY 28 DAYS)
     Route: 048
     Dates: start: 20160311
  4. IBRANCE [Suspect]
     Active Substance: PALBOCICLIB
     Dosage: 100 MG, CYCLIC (D1-D21 Q28 D)
     Route: 048
  5. IBRANCE [Suspect]
     Active Substance: PALBOCICLIB
     Dosage: 100 MG, CYCLIC (DAY 1-21 Q 28 DAYS)
     Route: 048
  6. IBRANCE [Suspect]
     Active Substance: PALBOCICLIB
     Dosage: 100 MG, CYCLIC (D1-D21 Q28 D)
     Route: 048
     Dates: start: 20160311

REACTIONS (24)
  - Hyperthyroidism [Unknown]
  - Migraine [Unknown]
  - Varicose vein [Unknown]
  - Parathyroid disorder [Unknown]
  - Thyroid function test abnormal [Unknown]
  - Blood calcium increased [Not Recovered/Not Resolved]
  - Parathyroid gland enlargement [Unknown]
  - Musculoskeletal stiffness [Unknown]
  - Increased appetite [Unknown]
  - Burning sensation [Unknown]
  - Joint stiffness [Unknown]
  - Skin burning sensation [Unknown]
  - Insomnia [Unknown]
  - Neoplasm progression [Unknown]
  - Hot flush [Unknown]
  - Drug dose omission [Unknown]
  - Paraesthesia [Unknown]
  - Pruritus [Unknown]
  - Neutrophil count decreased [Unknown]
  - White blood cell count decreased [Unknown]
  - Photosensitivity reaction [Unknown]
  - Vomiting [Unknown]
  - Energy increased [Unknown]
  - Blood pressure increased [Unknown]

NARRATIVE: CASE EVENT DATE: 2016
